FAERS Safety Report 12582493 (Version 1)
Quarter: 2016Q3

REPORT INFORMATION
  Report Type: Spontaneous
  Country: ZA (occurrence: ZA)
  Receive Date: 20160722
  Receipt Date: 20160722
  Transmission Date: 20161109
  Serious: Yes (Hospitalization, Other)
  Sender: FDA-Public Use
  Company Number: ZA-ASTELLAS-2016US026557

PATIENT
  Sex: Female

DRUGS (3)
  1. ADVAGRAF [Suspect]
     Active Substance: TACROLIMUS
     Indication: TRANSPLANT
     Route: 048
  2. PROGRAF [Suspect]
     Active Substance: TACROLIMUS\TACROLIMUS ANHYDROUS
     Indication: TRANSPLANT
     Route: 048
  3. CELLCEPT [Concomitant]
     Active Substance: MYCOPHENOLATE MOFETIL\MYCOPHENOLATE MOFETIL HYDROCHLORIDE
     Indication: IMMUNOSUPPRESSANT DRUG THERAPY
     Route: 048

REACTIONS (8)
  - Diarrhoea [Unknown]
  - Nausea [Unknown]
  - Renal impairment [Unknown]
  - Dizziness [Unknown]
  - Tremor [Unknown]
  - Drug level fluctuating [Unknown]
  - Haemoglobin decreased [Unknown]
  - Malaise [Unknown]
